FAERS Safety Report 6679632 (Version 18)
Quarter: 2013Q1

REPORT INFORMATION
  Report Type: Spontaneous
  Country: US (occurrence: US)
  Receive Date: 20080624
  Receipt Date: 20130103
  Transmission Date: 20140127
  Serious: Yes (Congenital Anomaly, Other)
  Sender: FDA-Public Use
  Company Number: US-PFIZER INC-2008049836

PATIENT
  Sex: Female
  Weight: 2 kg

DRUGS (18)
  1. ZOLOFT [Suspect]
     Indication: DEPRESSION
     Dosage: 25 MG, 1X/DAY
     Route: 064
     Dates: start: 200409, end: 200705
  2. ZOLOFT [Suspect]
     Dosage: 50 MG, 1X/DAY
     Route: 064
     Dates: start: 20050625
  3. SERTRALINE HCL [Suspect]
     Indication: DEPRESSION
     Dosage: UNK
     Route: 064
  4. PROMETHAZINE [Concomitant]
     Indication: NAUSEA
     Dosage: EVERY 6 HOURS AS NEEDED
     Route: 064
     Dates: start: 2005
  5. ENDOCET [Concomitant]
     Indication: PAIN
     Dosage: 6 EVERY 1 AS NECESSARYEVERY 4 HOURS AS NEEDED
     Route: 064
     Dates: start: 2005
  6. TRIAMCINOLONE [Concomitant]
     Dosage: UNK
     Route: 064
  7. LETROZOLE [Concomitant]
     Indication: INFERTILITY FEMALE
     Dosage: TWO TABLETS DAILY
     Route: 064
  8. OVIDREL [Concomitant]
     Indication: INFERTILITY FEMALE
     Dosage: 250 UG, UNK
     Route: 064
  9. HYDROCODONE [Concomitant]
     Dosage: UNK
     Route: 064
  10. ONDANSETRON [Concomitant]
     Dosage: UNK
     Route: 064
  11. HYDROCODONE W/ACETAMINOPHEN [Concomitant]
     Dosage: UNK
     Route: 064
  12. PRENATAL VITAMINS [Concomitant]
     Dosage: UNK
     Route: 064
  13. TRIAMCINOLONE ACETONIDE [Concomitant]
     Dosage: UNK
     Route: 064
  14. TAMIFLU [Concomitant]
     Dosage: UNK
     Route: 064
  15. FEMARA [Concomitant]
     Dosage: UNK
     Route: 064
  16. CLOMIPHENE [Concomitant]
     Dosage: UNK
     Route: 064
  17. ADVIL [Concomitant]
     Dosage: UNK
     Route: 064
  18. CLOMID [Concomitant]
     Dosage: UNK
     Route: 064

REACTIONS (21)
  - Foetal exposure during pregnancy [Unknown]
  - Congenital central nervous system anomaly [Unknown]
  - Nervous system disorder [Unknown]
  - Patent ductus arteriosus [Recovering/Resolving]
  - Ventricular septal defect [Recovering/Resolving]
  - Congenital pulmonary hypertension [Recovered/Resolved]
  - Hypothalamo-pituitary disorder [Unknown]
  - Spine malformation [Recovered/Resolved]
  - Cerebellar hypoplasia [Unknown]
  - Hypopituitarism foetal [Unknown]
  - Congenital hypothyroidism [Unknown]
  - Septum pellucidum agenesis [Unknown]
  - Adrenal insufficiency neonatal [Unknown]
  - Congenital central nervous system anomaly [Unknown]
  - Atrial septal defect [Unknown]
  - Congenital anomaly [Unknown]
  - Aortic disorder [Unknown]
  - Lung disorder [Unknown]
  - Gastrooesophageal reflux disease [Unknown]
  - Ventricular hypertrophy [Unknown]
  - Clinodactyly [Unknown]
